FAERS Safety Report 12903635 (Version 1)
Quarter: 2016Q4

REPORT INFORMATION
  Report Type: Spontaneous
  Country: ES (occurrence: ES)
  Receive Date: 20161102
  Receipt Date: 20161102
  Transmission Date: 20170207
  Serious: Yes (Hospitalization, Other)
  Sender: FDA-Public Use
  Company Number: ES-BRISTOL-MYERS SQUIBB COMPANY-BMS-2016-089386

PATIENT
  Age: 58 Year
  Sex: Male

DRUGS (3)
  1. SOVALDI [Suspect]
     Active Substance: SOFOSBUVIR
     Indication: HEPATITIS C VIRUS TEST
     Dosage: 400 MG, QD
     Route: 048
     Dates: start: 20160518
  2. RIBAVIRIN. [Suspect]
     Active Substance: RIBAVIRIN
     Indication: HEPATITIS C VIRUS TEST
     Dosage: 600 MG, QD
     Route: 048
     Dates: start: 20160518
  3. DAKLINZA [Suspect]
     Active Substance: DACLATASVIR
     Indication: HEPATITIS C VIRUS TEST
     Dosage: 60 MG, QD
     Route: 048
     Dates: start: 20160518

REACTIONS (2)
  - Subarachnoid haemorrhage [Recovering/Resolving]
  - Physical assault [Unknown]

NARRATIVE: CASE EVENT DATE: 20161008
